FAERS Safety Report 10142711 (Version 1)
Quarter: 2014Q2

REPORT INFORMATION
  Report Type: Spontaneous
  Country: US (occurrence: None)
  Receive Date: 20140429
  Receipt Date: 20140429
  Transmission Date: 20141212
  Serious: Yes (Hospitalization)
  Sender: FDA-Public Use
  Company Number: None

PATIENT
  Age: 69 Year
  Sex: Female
  Weight: 83 kg

DRUGS (4)
  1. BEVACIZUMAB (RHUMAB VEGF) (704865) [Suspect]
  2. CARBOPLATIN [Suspect]
  3. PACLITAXEL (TAXOL) [Suspect]
  4. PEMETREXED (ALIMTA; LY231514) [Suspect]

REACTIONS (8)
  - Febrile neutropenia [None]
  - Urinary tract infection [None]
  - Performance status decreased [None]
  - Oedema [None]
  - Pulmonary embolism [None]
  - Pulmonary mass [None]
  - Pleural effusion [None]
  - Lymphadenopathy [None]
